FAERS Safety Report 25526162 (Version 1)
Quarter: 2025Q3

REPORT INFORMATION
  Report Type: Spontaneous
  Country: US (occurrence: None)
  Receive Date: 20250707
  Receipt Date: 20250707
  Transmission Date: 20251021
  Serious: No
  Sender: FDA-CTU
  Company Number: None

PATIENT

DRUGS (1)
  1. ERLEADA [Suspect]
     Active Substance: APALUTAMIDE

REACTIONS (8)
  - Diarrhoea [None]
  - Decreased appetite [None]
  - Fall [None]
  - Traumatic fracture [None]
  - Rib fracture [None]
  - Pelvic fracture [None]
  - Wrist fracture [None]
  - Urinary tract infection [None]
